FAERS Safety Report 8775949 (Version 2)
Quarter: 2015Q2

REPORT INFORMATION
  Report Type: Report from Study
  Country: US (occurrence: US)
  Receive Date: 20120910
  Receipt Date: 20150623
  Transmission Date: 20150821
  Serious: Yes (Death)
  Sender: FDA-Public Use
  Company Number: US-ROCHE-1118089

PATIENT
  Sex: Male

DRUGS (18)
  1. TAXOL [Concomitant]
     Active Substance: PACLITAXEL
     Route: 042
  2. ZOMETA [Concomitant]
     Active Substance: ZOLEDRONIC ACID
     Route: 042
  3. ARANESP [Concomitant]
     Active Substance: DARBEPOETIN ALFA
     Route: 058
  4. TARCEVA [Suspect]
     Active Substance: ERLOTINIB HYDROCHLORIDE
     Indication: MALIGNANT RESPIRATORY TRACT NEOPLASM
     Route: 065
  5. NEULASTA [Concomitant]
     Active Substance: PEGFILGRASTIM
     Route: 065
  6. CARBOPLATIN. [Concomitant]
     Active Substance: CARBOPLATIN
     Route: 065
  7. CARBOPLATIN. [Concomitant]
     Active Substance: CARBOPLATIN
     Route: 065
  8. TAXOL [Concomitant]
     Active Substance: PACLITAXEL
     Route: 042
  9. DECADRON [Concomitant]
     Active Substance: DEXAMETHASONE
     Route: 042
  10. BENADRYL [Concomitant]
     Active Substance: DIPHENHYDRAMINE HYDROCHLORIDE
     Route: 065
  11. TARCEVA [Suspect]
     Active Substance: ERLOTINIB HYDROCHLORIDE
     Indication: LUNG NEOPLASM MALIGNANT
     Route: 065
     Dates: start: 20060913
  12. TAXOTERE [Concomitant]
     Active Substance: DOCETAXEL
     Route: 065
  13. CARBOPLATIN. [Concomitant]
     Active Substance: CARBOPLATIN
     Route: 065
  14. ARANESP [Concomitant]
     Active Substance: DARBEPOETIN ALFA
     Route: 058
  15. MENTAX [Concomitant]
     Active Substance: BUTENAFINE HYDROCHLORIDE
  16. AVASTIN [Suspect]
     Active Substance: BEVACIZUMAB
     Indication: LUNG NEOPLASM MALIGNANT
     Route: 042
     Dates: start: 20060913
  17. AVASTIN [Suspect]
     Active Substance: BEVACIZUMAB
     Route: 042
  18. ARANESP [Concomitant]
     Active Substance: DARBEPOETIN ALFA
     Indication: ANAEMIA
     Route: 058

REACTIONS (4)
  - Rash [Recovered/Resolved]
  - Death [Fatal]
  - Diarrhoea [Recovered/Resolved]
  - Off label use [Unknown]
